FAERS Safety Report 17205605 (Version 1)
Quarter: 2019Q4

REPORT INFORMATION
  Report Type: Spontaneous
  Country: US (occurrence: US)
  Receive Date: 20191204
  Receipt Date: 20191204
  Transmission Date: 20200122
  Serious: No
  Sender: FDA-Public Use
  Company Number: None

PATIENT
  Age: 19 Year
  Sex: Female

DRUGS (2)
  1. TRIKAFTA [Suspect]
     Active Substance: ELEXACAFTOR\IVACAFTOR\TEZACAFTOR
     Indication: CYSTIC FIBROSIS
     Dosage: ?          OTHER FREQUENCY:2QAM +QPM; 100MG/50MG/75 MG/150MG?
     Route: 048
  2. PULMOZYME [Suspect]
     Active Substance: DORNASE ALFA

REACTIONS (1)
  - Pregnancy [None]

NARRATIVE: CASE EVENT DATE: 201912
